FAERS Safety Report 17586458 (Version 1)
Quarter: 2020Q1

REPORT INFORMATION
  Report Type: Spontaneous
  Country: US (occurrence: US)
  Receive Date: 20200326
  Receipt Date: 20200326
  Transmission Date: 20200409
  Serious: No
  Sender: FDA-Public Use
  Company Number: None

PATIENT
  Age: 93 Year
  Sex: Female
  Weight: 74.25 kg

DRUGS (4)
  1. XGEVA [Suspect]
     Active Substance: DENOSUMAB
     Indication: PLASMA CELL MYELOMA
     Dosage: ?          OTHER FREQUENCY:EVERY 4 WEEKS;?
     Route: 058
     Dates: start: 20200217, end: 20200326
  2. DEXAMETHASONE 0.5 MG, ORAL [Concomitant]
  3. VELCADE [Suspect]
     Active Substance: BORTEZOMIB
     Indication: PLASMA CELL MYELOMA
     Dosage: ?          OTHER FREQUENCY:EVERY 3 WEEKS;?
     Route: 058
     Dates: start: 20200217, end: 20200326
  4. ZOLEDRONIC ACID 4MG/5ML VIAL [Concomitant]
     Dates: start: 20200206, end: 20200217

REACTIONS (1)
  - Hospice care [None]

NARRATIVE: CASE EVENT DATE: 20200326
